FAERS Safety Report 7096477-6 (Version None)
Quarter: 2010Q4

REPORT INFORMATION
  Report Type: 
  Country: None (occurrence: None)
  Receive Date: 20101111
  Receipt Date: 20101101
  Transmission Date: 20110411
  Serious: No
  Sender: FDA-Public Use
  Company Number: US-CELGENEUS-163-21880-10101570

PATIENT
  Sex: Female

DRUGS (2)
  1. REVLIMID [Suspect]
     Indication: MULTIPLE MYELOMA
     Route: 048
     Dates: start: 20091026
  2. WARFARIN SODIUM [Concomitant]
     Indication: THROMBOSIS
     Route: 065

REACTIONS (1)
  - EPISTAXIS [None]
